FAERS Safety Report 4356243-9 (Version None)
Quarter: 2004Q2

REPORT INFORMATION
  Report Type: 
  Country: None (occurrence: None)
  Receive Date: 20040511
  Receipt Date: 20040423
  Transmission Date: 20050107
  Serious: Yes (Life-Threatening, Hospitalization, Disabling)
  Sender: FDA-Public Use
  Company Number: 2003119176

PATIENT
  Age: 57 Year
  Sex: Male

DRUGS (3)
  1. VIAGRA [Suspect]
     Indication: ERECTILE DYSFUNCTION
     Dosage: 100 MG, ORAL
     Route: 048
     Dates: start: 20010325, end: 20010325
  2. ETHANOL [Concomitant]
  3. APOMORPHINE HYDROCHLORIDE [Concomitant]

REACTIONS (10)
  - APHASIA [None]
  - BRAIN OEDEMA [None]
  - FATIGUE [None]
  - INCONTINENCE [None]
  - LOSS OF CONSCIOUSNESS [None]
  - PAROSMIA [None]
  - POLLAKIURIA [None]
  - SPEECH DISORDER [None]
  - SUBARACHNOID HAEMORRHAGE [None]
  - SYNCOPE [None]
